FAERS Safety Report 7266846-X (Version None)
Quarter: 2011Q1

REPORT INFORMATION
  Report Type: 
  Country: None (occurrence: None)
  Receive Date: 20110201
  Receipt Date: 20110126
  Transmission Date: 20110831
  Serious: Yes (Death, Other)
  Sender: FDA-Public Use
  Company Number: US-AMGEN-USASP2010011930

PATIENT
  Age: 65 Year
  Sex: Female
  Weight: 57.143 kg

DRUGS (10)
  1. CYCLOSPORINE [Concomitant]
  2. LEVOTHROID [Concomitant]
     Indication: PRODUCT USED FOR UNKNOWN INDICATION
  3. PROGRA [Concomitant]
  4. FAMOTIDINE [Concomitant]
     Indication: PRODUCT USED FOR UNKNOWN INDICATION
  5. NPLATE [Suspect]
     Indication: THROMBOCYTOPENIA
     Dosage: 1 A?G/KG, QWK
     Route: 058
     Dates: start: 20100805, end: 20101104
  6. FILGRASTIM [Concomitant]
     Indication: PRODUCT USED FOR UNKNOWN INDICATION
  7. NPLATE [Suspect]
     Indication: APLASTIC ANAEMIA
  8. ANTITHYMOCYTE IMMUNOGLOBULIN [Concomitant]
  9. CORTICOSTEROIDS [Concomitant]
  10. FLUCONAZOLE [Concomitant]
     Indication: PRODUCT USED FOR UNKNOWN INDICATION

REACTIONS (3)
  - HAEMATOLOGICAL MALIGNANCY [None]
  - DRUG INEFFECTIVE [None]
  - APLASTIC ANAEMIA [None]
